FAERS Safety Report 6713263-4 (Version None)
Quarter: 2010Q2

REPORT INFORMATION
  Report Type: 
  Country: None (occurrence: None)
  Receive Date: 20100506
  Receipt Date: 20100427
  Transmission Date: 20101027
  Serious: Yes (Hospitalization, Other)
  Sender: FDA-Public Use
  Company Number: FR-BAYER-201023844GPV

PATIENT
  Age: 60 Year
  Sex: Female
  Weight: 78 kg

DRUGS (14)
  1. FLUDARA [Suspect]
     Indication: CHRONIC LYMPHOCYTIC LEUKAEMIA
     Dosage: 6 COURSES
     Route: 042
     Dates: start: 20090218, end: 20090710
  2. MABTHERA [Suspect]
     Indication: CHRONIC LYMPHOCYTIC LEUKAEMIA
     Dosage: 6 COURSES
     Route: 042
     Dates: start: 20090218, end: 20090710
  3. ENDOXAN [Suspect]
     Indication: CHRONIC LYMPHOCYTIC LEUKAEMIA
     Dosage: 6 COURSES
     Route: 048
     Dates: start: 20090218, end: 20090710
  4. NEXIUM [Suspect]
     Indication: DRUG USE FOR UNKNOWN INDICATION
     Dosage: INTRODUCED AFTER JUN-2009
     Route: 048
     Dates: start: 20090101, end: 20100218
  5. KESTIN [Suspect]
     Indication: DRUG USE FOR UNKNOWN INDICATION
     Dosage: INTRODUCED AFTER JUN-2009
     Route: 048
     Dates: end: 20100218
  6. BACTRIM [Concomitant]
  7. PROPRANOLOL [Concomitant]
  8. PREDNISONE [Concomitant]
  9. ATARAX [Concomitant]
  10. TRAMADOL [Concomitant]
  11. PENTACARINAT [Concomitant]
     Indication: LYMPHOPENIA
     Dates: start: 20091001, end: 20091201
  12. MESNA [Concomitant]
     Dates: start: 20090218, end: 20090610
  13. DOMPERIDONE [Concomitant]
     Dates: end: 20100201
  14. METOCLOPRAMIDE HYDROCHLORIDE [Concomitant]
     Dates: start: 20100201

REACTIONS (4)
  - AGRANULOCYTOSIS [None]
  - ALVEOLITIS ALLERGIC [None]
  - LYMPHOPENIA [None]
  - NEUTROPENIA [None]
